FAERS Safety Report 5091646-9 (Version None)
Quarter: 2006Q3

REPORT INFORMATION
  Report Type: 
  Country: None (occurrence: None)
  Receive Date: 20060824
  Receipt Date: 20060811
  Transmission Date: 20061208
  Serious: Yes (Death)
  Sender: FDA-Public Use
  Company Number: 2006096201

PATIENT
  Age: 80 Year
  Sex: Female

DRUGS (4)
  1. LYRICA [Suspect]
     Indication: BONE PAIN
     Dosage: 150 MG (75 MG, 2 IN 1 D); ORAL
     Route: 048
     Dates: start: 20060410, end: 20060101
  2. DURAGESIC-100 [Concomitant]
  3. DUREKAL (POTASSIUM CHLORIDE) [Concomitant]
  4. DEPONIT (GLYCERYL TRINITRATE) [Concomitant]

REACTIONS (2)
  - MUSCLE TWITCHING [None]
  - VISION BLURRED [None]
